FAERS Safety Report 6006124-X (Version None)
Quarter: 2008Q4

REPORT INFORMATION
  Report Type: 
  Country: None (occurrence: None)
  Receive Date: 20081217
  Receipt Date: 20080117
  Transmission Date: 20090506
  Serious: No
  Sender: FDA-Public Use
  Company Number: US-AMGEN-KDL258537

PATIENT
  Sex: Female

DRUGS (4)
  1. ENBREL [Suspect]
     Indication: RHEUMATOID ARTHRITIS
     Route: 058
     Dates: start: 20040101
  2. PLAQUENIL [Concomitant]
     Route: 048
     Dates: start: 19920101
  3. GOLD [Concomitant]
     Route: 048
     Dates: start: 19950101
  4. ARAVA [Concomitant]
     Route: 048
     Dates: start: 20060101

REACTIONS (13)
  - FALL [None]
  - HYPOAESTHESIA [None]
  - INJECTION SITE ERYTHEMA [None]
  - INJECTION SITE HAEMATOMA [None]
  - INJECTION SITE PAIN [None]
  - INJECTION SITE URTICARIA [None]
  - INTERVERTEBRAL DISC PROTRUSION [None]
  - NECK INJURY [None]
  - PAIN IN EXTREMITY [None]
  - PRODUCTIVE COUGH [None]
  - RHEUMATOID ARTHRITIS [None]
  - SINUSITIS [None]
  - UPPER RESPIRATORY TRACT INFECTION [None]
